FAERS Safety Report 4915034-8 (Version None)
Quarter: 2006Q1

REPORT INFORMATION
  Report Type: 
  Country: None (occurrence: None)
  Receive Date: 20060217
  Receipt Date: 20051115
  Transmission Date: 20060701
  Serious: Yes (Other)
  Sender: FDA-Public Use
  Company Number: PHBS2005FR16975

PATIENT
  Age: 45 Year
  Sex: Male
  Weight: 83 kg

DRUGS (8)
  1. VOLTAREN [Suspect]
     Indication: RENAL COLIC
     Dosage: 100 MG/DAY
     Route: 048
     Dates: start: 20041108
  2. ESOMEPRAZOLE [Suspect]
     Indication: GASTROOESOPHAGEAL REFLUX DISEASE
     Dosage: 20 MG/DAY
  3. TRANXENE [Suspect]
     Indication: ANXIETY
     Dosage: 50 MG/DAY
  4. METHADONE [Suspect]
     Dosage: 60 MG/DAY
  5. IMOVANE [Suspect]
     Indication: SLEEP DISORDER
     Dosage: 7.5 MG/AT NIGHT
  6. SPASFON [Concomitant]
     Dosage: 6 DF/DAY
     Route: 048
     Dates: start: 20041004
  7. VISCERALGINE [Concomitant]
     Dosage: 30 MG/DAY
  8. BI-PROFENID [Concomitant]
     Dosage: 300 MG/DAY

REACTIONS (5)
  - DISTURBANCE IN ATTENTION [None]
  - DIZZINESS [None]
  - DRUG INTERACTION [None]
  - FEELING DRUNK [None]
  - TREATMENT NONCOMPLIANCE [None]
